FAERS Safety Report 22311082 (Version 1)
Quarter: 2023Q2

REPORT INFORMATION
  Report Type: Spontaneous
  Country: NP (occurrence: NP)
  Receive Date: 20230511
  Receipt Date: 20230511
  Transmission Date: 20230721
  Serious: Yes (Hospitalization, Other)
  Sender: FDA-Public Use
  Company Number: NP-GLAXOSMITHKLINE-NP2023GSK066318

PATIENT
  Age: 22 Year
  Sex: Female

DRUGS (3)
  1. TERBINAFINE HYDROCHLORIDE [Suspect]
     Active Substance: TERBINAFINE HYDROCHLORIDE
     Indication: Dermatophytosis
     Dosage: UNK
     Route: 048
  2. TERBINAFINE HYDROCHLORIDE [Suspect]
     Active Substance: TERBINAFINE HYDROCHLORIDE
     Indication: Alopecia
  3. TERBINAFINE HYDROCHLORIDE [Suspect]
     Active Substance: TERBINAFINE HYDROCHLORIDE
     Indication: Skin exfoliation

REACTIONS (19)
  - Toxic epidermal necrolysis [Recovered/Resolved]
  - Swelling face [Recovered/Resolved]
  - Blister [Recovered/Resolved]
  - Swelling of eyelid [Recovered/Resolved]
  - Lip swelling [Recovered/Resolved]
  - Target skin lesion [Recovered/Resolved]
  - Rash macular [Recovered/Resolved]
  - Erythema [Recovered/Resolved]
  - General physical health deterioration [Recovering/Resolving]
  - Oedema peripheral [Recovered/Resolved]
  - Rash erythematous [Recovered/Resolved]
  - Skin erosion [Recovered/Resolved]
  - Nikolsky^s sign [Recovered/Resolved]
  - Wound [Recovered/Resolved]
  - Skin hyperpigmentation [Unknown]
  - Skin hypopigmentation [Unknown]
  - Erythema of eyelid [Recovered/Resolved]
  - Anaemia [Unknown]
  - Condition aggravated [Recovered/Resolved]
